FAERS Safety Report 20431794 (Version 1)
Quarter: 2022Q1

REPORT INFORMATION
  Report Type: Report from Study
  Country: CO (occurrence: None)
  Receive Date: 20220204
  Receipt Date: 20220204
  Transmission Date: 20220423
  Serious: Yes (Death, Hospitalization, Other)
  Sender: FDA-Public Use
  Company Number: 2022A058938

PATIENT
  Age: 23636 Day
  Sex: Male
  Weight: 65 kg

DRUGS (1)
  1. IMFINZI [Suspect]
     Active Substance: DURVALUMAB
     Indication: Lung neoplasm malignant
     Route: 042
     Dates: start: 20210811, end: 20220122

REACTIONS (2)
  - Myocardial infarction [Fatal]
  - Product prescribing issue [Fatal]

NARRATIVE: CASE EVENT DATE: 20210811
